FAERS Safety Report 10379645 (Version 1)
Quarter: 2014Q3

REPORT INFORMATION
  Report Type: Spontaneous
  Country: NL (occurrence: NL)
  Receive Date: 20140812
  Receipt Date: 20140812
  Transmission Date: 20150326
  Serious: Yes (Other)
  Sender: FDA-Public Use
  Company Number: NL-009507513-1408NLD005505

PATIENT
  Age: 66 Year
  Sex: Male

DRUGS (8)
  1. ACETYLSALICYLZUUR CARDIO CF [Concomitant]
     Dosage: 1DD1, START DATE UNKNOWN
     Route: 048
  2. DIPROSONE (BETAMETHASONE DIPROPIONATE (+) BETAMETHASONE SODIUM PHOSPHA [Concomitant]
     Dosage: KNOWN USE, START DATE UNKNOWN, CREAM 0.5 MG/G
     Route: 003
  3. AMLODIPINE MALEATE [Concomitant]
     Active Substance: AMLODIPINE MALEATE
     Dosage: 1DD1, START DATE NOT EXACTLY KNOWN
     Route: 048
     Dates: end: 20140626
  4. FLIXONASE [Concomitant]
     Active Substance: FLUTICASONE PROPIONATE
     Dosage: KNOWN USE ,START DATE UNKNOWN
     Route: 045
  5. AMITRIPTYLINE HYDROCHLORIDE. [Suspect]
     Active Substance: AMITRIPTYLINE HYDROCHLORIDE
     Indication: FACIAL PAIN
     Dosage: 3DD1
     Route: 048
     Dates: start: 20140411
  6. LYRICA [Suspect]
     Active Substance: PREGABALIN
     Indication: FACIAL PAIN
     Dosage: 75 MG
     Route: 048
     Dates: start: 20140314
  7. NITROGLYCERIN. [Concomitant]
     Active Substance: NITROGLYCERIN
     Dosage: KNOWN USE, START DATE UNKNOWN
     Route: 060
  8. ACETAMINOPHEN (+) CAFFEINE [Concomitant]
     Dosage: 1-4DD1, START DATE UNKNOWN
     Route: 048
     Dates: start: 20140327

REACTIONS (2)
  - Blindness [Not Recovered/Not Resolved]
  - Vision blurred [Not Recovered/Not Resolved]

NARRATIVE: CASE EVENT DATE: 20140401
